FAERS Safety Report 25198598 (Version 2)
Quarter: 2025Q2

REPORT INFORMATION
  Report Type: Report from Study
  Country: US (occurrence: US)
  Receive Date: 20250415
  Receipt Date: 20250424
  Transmission Date: 20250717
  Serious: Yes (Other)
  Sender: ACADIA PHARMACEUTICALS
  Company Number: US-ACADIA PHARMACEUTICALS INC.-ACA-2025-PIM-004183

PATIENT
  Sex: Female

DRUGS (11)
  1. NUPLAZID [Suspect]
     Active Substance: PIMAVANSERIN TARTRATE
     Indication: Parkinson^s disease
     Dosage: 34 MILLIGRAM, QD
     Route: 048
     Dates: start: 202502
  2. NUPLAZID [Suspect]
     Active Substance: PIMAVANSERIN TARTRATE
     Indication: Parkinson^s disease psychosis
     Dosage: 34 MILLIGRAM, QD
     Route: 048
  3. GABAPENTIN [Concomitant]
     Active Substance: GABAPENTIN
  4. GABAPENTIN [Concomitant]
     Active Substance: GABAPENTIN
  5. CARBIDOPA\LEVODOPA [Concomitant]
     Active Substance: CARBIDOPA\LEVODOPA
  6. RIVASTIGMINE [Concomitant]
     Active Substance: RIVASTIGMINE
  7. CALCIUM [Concomitant]
     Active Substance: CALCIUM
  8. ROSUVASTATIN [Concomitant]
     Active Substance: ROSUVASTATIN
  9. ATENOLOL [Concomitant]
     Active Substance: ATENOLOL
  10. MAGNESIUM [Concomitant]
     Active Substance: MAGNESIUM
  11. SERTRALINE [Concomitant]
     Active Substance: SERTRALINE HYDROCHLORIDE

REACTIONS (6)
  - Hypertension [Not Recovered/Not Resolved]
  - Syncope [Unknown]
  - Blood pressure fluctuation [Not Recovered/Not Resolved]
  - Headache [Unknown]
  - Neck pain [Unknown]
  - Product dose omission in error [Unknown]
